FAERS Safety Report 7003563-5 (Version None)
Quarter: 2010Q3

REPORT INFORMATION
  Report Type: 
  Country: None (occurrence: None)
  Receive Date: 20100916
  Receipt Date: 20100903
  Transmission Date: 20110219
  Serious: Yes (Hospitalization, Other)
  Sender: FDA-Public Use
  Company Number: DSJ-2010-15528

PATIENT
  Sex: Female

DRUGS (9)
  1. BENICAR [Suspect]
     Indication: HYPERTENSION
     Dosage: 20 MG (20 MG, 1 IN 1 D), PER ORAL; 40 MG (40 MG, 1 IN 1 D), PER ORAL
     Route: 048
     Dates: start: 20070401, end: 20100801
  2. BENICAR [Suspect]
     Indication: HYPERTENSION
     Dosage: 20 MG (20 MG, 1 IN 1 D), PER ORAL; 40 MG (40 MG, 1 IN 1 D), PER ORAL
     Route: 048
     Dates: start: 20100801
  3. ATENOLOL [Suspect]
     Indication: HYPERTENSION
     Dosage: 50 MG, PER ORAL
     Route: 048
     Dates: start: 20090101, end: 20100801
  4. ACETYLSALICYLIC ACID SRT [Suspect]
     Indication: PROPHYLAXIS
     Dosage: 100 MG, PER ORAL
     Route: 048
     Dates: start: 20100201
  5. CELECOXIB [Suspect]
     Indication: ANTIINFLAMMATORY THERAPY
     Dosage: PER ORAL
     Route: 048
     Dates: start: 20100701, end: 20100801
  6. ISOFLAVONE [Concomitant]
  7. CLONAZEPAM [Concomitant]
  8. PREDNISOLONE [Concomitant]
  9. NORFLOXACIN (NORFLOXACIN) (NORFLOXACIN) [Concomitant]

REACTIONS (13)
  - ANXIETY [None]
  - ARTERIOSCLEROSIS [None]
  - BLOOD PRESSURE SYSTOLIC INCREASED [None]
  - BRONCHITIS [None]
  - CYANOSIS [None]
  - DRUG INEFFECTIVE [None]
  - FALL [None]
  - HEADACHE [None]
  - INSOMNIA [None]
  - LUNG NEOPLASM [None]
  - NERVOUSNESS [None]
  - PULMONARY GRANULOMA [None]
  - WEIGHT INCREASED [None]
